FAERS Safety Report 8877945 (Version 1)
Quarter: 2012Q4

REPORT INFORMATION
  Report Type: 
  Country: US (occurrence: US)
  Receive Date: 20121025
  Receipt Date: 20121025
  Transmission Date: 20130627
  Serious: No
  Sender: FDA-Public Use
  Company Number: US-AMGEN-USASP2012020196

PATIENT
  Age: 49 Year
  Sex: Female

DRUGS (9)
  1. ENBREL [Suspect]
     Indication: PRODUCT USED FOR UNKNOWN INDICATION
     Dosage: 50 mg, qwk
     Route: 058
  2. METHOTREXATE [Concomitant]
     Dosage: 2.5 mg, UNK
  3. PREDNISONE [Concomitant]
     Dosage: 5 mg, UNK
  4. SULFASALAZIN [Concomitant]
     Dosage: 500 mg, UNK
  5. FOLIC ACID [Concomitant]
     Dosage: 1 mg, UNK
  6. ISONIAZID [Concomitant]
     Dosage: 300 mg, UNK
  7. PYRIDOXINE [Concomitant]
     Dosage: 25 mg, UNK
  8. PREDNISOL                          /00016201/ [Concomitant]
  9. TIMOLOL MALEATE [Concomitant]

REACTIONS (4)
  - Oedema peripheral [Unknown]
  - Musculoskeletal discomfort [Unknown]
  - Ocular hyperaemia [Unknown]
  - Insomnia [Unknown]
